FAERS Safety Report 12572936 (Version 1)
Quarter: 2016Q3

REPORT INFORMATION
  Report Type: Spontaneous
  Country: PL (occurrence: PL)
  Receive Date: 20160720
  Receipt Date: 20160720
  Transmission Date: 20161109
  Serious: Yes (Other)
  Sender: FDA-Public Use
  Company Number: PL-ACCORD-042395

PATIENT
  Age: 14 Year
  Sex: Male

DRUGS (5)
  1. INTERFERON BETA NOS [Concomitant]
     Active Substance: INTERFERON BETA
  2. RIFAMPICIN/RIFAMPICIN SODIUM [Concomitant]
     Indication: TUBERCULOSIS
  3. ISONIAZID. [Concomitant]
     Active Substance: ISONIAZID
     Indication: TUBERCULOSIS
  4. CISPLATIN. [Suspect]
     Active Substance: CISPLATIN
     Indication: CHEMOTHERAPY
  5. FLUOROURACIL. [Suspect]
     Active Substance: FLUOROURACIL
     Indication: CHEMOTHERAPY

REACTIONS (3)
  - Hyperaesthesia [Unknown]
  - Bartonella test positive [Unknown]
  - Deafness neurosensory [Unknown]
